FAERS Safety Report 15348607 (Version 1)
Quarter: 2018Q3

REPORT INFORMATION
  Report Type: Spontaneous
  Country: US (occurrence: US)
  Receive Date: 20180904
  Receipt Date: 20180904
  Transmission Date: 20181010
  Serious: Yes (Other)
  Sender: FDA-Public Use
  Company Number: US-HERITAGE PHARMACEUTICALS-2018HTG00200

PATIENT
  Sex: Female
  Weight: 57.14 kg

DRUGS (19)
  1. MAGE [Concomitant]
     Dosage: 400 MG, 2X/DAY
  2. LEVOTHYROXINE. [Concomitant]
     Active Substance: LEVOTHYROXINE
     Dosage: 115 MCG, 1X/DAY
  3. DORZOLAMIDE [Concomitant]
     Active Substance: DORZOLAMIDE
     Dosage: 2 DROP, 2X/DAY (1 DROP IN EACH EYE)
  4. ARTIFICIAL TEARS [Concomitant]
     Active Substance: GLYCERIN\HYPROMELLOSES\POLYETHYLENE GLYCOL 400
  5. SODIUM BICARBONATE. [Concomitant]
     Active Substance: SODIUM BICARBONATE
     Dosage: 1320 MG, 2X/DAY
  6. SODIUM BICARBONATE. [Concomitant]
     Active Substance: SODIUM BICARBONATE
     Dosage: 648 MG, 1X/DAY IN THE EVENING
  7. FLECAINIDE [Concomitant]
     Active Substance: FLECAINIDE
     Dosage: 75 MG, 2X/DAY
  8. VITAMIN B12 [Concomitant]
     Active Substance: CYANOCOBALAMIN
  9. SENNA [Concomitant]
     Active Substance: SENNA LEAF\SENNOSIDES\SENNOSIDES A AND B
     Dosage: 25.8 MG, 1X/DAY BEFORE BED
  10. EFFEXOR XR [Concomitant]
     Active Substance: VENLAFAXINE HYDROCHLORIDE
     Dosage: 37.5 MG, 1X/DAY
  11. WARFARIN [Concomitant]
     Active Substance: WARFARIN
     Dosage: 5 MG, 1X/DAY
  12. LOTEMAX [Concomitant]
     Active Substance: LOTEPREDNOL ETABONATE
     Dosage: 1 DROP, 2X/DAY IN RIGHT EYE
  13. LINZESS [Concomitant]
     Active Substance: LINACLOTIDE
     Dosage: 72 MCG, 2X/DAY
  14. AMLODIPINE BESYLATE. [Concomitant]
     Active Substance: AMLODIPINE BESYLATE
     Dosage: 5 MG, 1X/DAY
  15. HYDRALAZINE HYDROCHLORIDE. [Suspect]
     Active Substance: HYDRALAZINE HYDROCHLORIDE
     Indication: HYPERTENSION
     Dosage: 40 MG, 3X/DAY
     Route: 048
     Dates: start: 2016
  16. VITAMIN D3 [Concomitant]
     Active Substance: CHOLECALCIFEROL
     Dosage: 1000 UNITS, 2X/DAY
  17. SODIUM BICARBONATE. [Concomitant]
     Active Substance: SODIUM BICARBONATE
     Dosage: 1296 MG, 1X/DAY IN THE MORNING
  18. CALCITRIOL. [Concomitant]
     Active Substance: CALCITRIOL
     Dosage: 0.25 MCG, 1X/DAY
  19. KETOROLAC [Concomitant]
     Active Substance: KETOROLAC\KETOROLAC TROMETHAMINE
     Dosage: 1 DROP, 2X/DAY IN RIGHT EYE

REACTIONS (6)
  - Multiple chemical sensitivity [Not Recovered/Not Resolved]
  - Gastrointestinal disorder [Not Recovered/Not Resolved]
  - Orthostatic hypotension [Not Recovered/Not Resolved]
  - Autonomic neuropathy [Not Recovered/Not Resolved]
  - Hypersomnia [Not Recovered/Not Resolved]
  - Abdominal discomfort [Not Recovered/Not Resolved]
